FAERS Safety Report 15665510 (Version 3)
Quarter: 2019Q1

REPORT INFORMATION
  Report Type: Report from Study
  Country: US (occurrence: US)
  Receive Date: 20181128
  Receipt Date: 20190329
  Transmission Date: 20190417
  Serious: Yes (Other)
  Sender: FDA-Public Use
  Company Number: US-JNJFOC-20181136587

PATIENT
  Sex: Male

DRUGS (6)
  1. VINCRISTINE [Suspect]
     Active Substance: VINCRISTINE
     Indication: MANTLE CELL LYMPHOMA
     Route: 065
  2. CYCLOPHOSPHAMIDE. [Suspect]
     Active Substance: CYCLOPHOSPHAMIDE
     Indication: MANTLE CELL LYMPHOMA
     Route: 065
  3. IBRUTINIB [Suspect]
     Active Substance: IBRUTINIB
     Indication: MANTLE CELL LYMPHOMA
     Route: 065
  4. RITUXIMAB. [Suspect]
     Active Substance: RITUXIMAB
     Indication: MANTLE CELL LYMPHOMA
     Route: 065
  5. DOXORUBICIN [Suspect]
     Active Substance: DOXORUBICIN
     Indication: MANTLE CELL LYMPHOMA
     Route: 065
  6. DEXAMETHASONE. [Suspect]
     Active Substance: DEXAMETHASONE
     Indication: MANTLE CELL LYMPHOMA
     Route: 065

REACTIONS (1)
  - Paraesthesia [Unknown]

NARRATIVE: CASE EVENT DATE: 20181115
